FAERS Safety Report 8240791-5 (Version None)
Quarter: 2012Q1

REPORT INFORMATION
  Report Type: 
  Country: None (occurrence: None)
  Receive Date: 20120328
  Receipt Date: 20120321
  Transmission Date: 20120608
  Serious: Yes (Other)
  Sender: FDA-Public Use
  Company Number: PHHY2009DE38140

PATIENT
  Sex: Female
  Weight: 59 kg

DRUGS (5)
  1. RASILEZ [Suspect]
     Indication: HYPERTENSION
     Dosage: 150 MG,1 DF, QD
     Route: 048
     Dates: start: 20081028
  2. NITRATES [Concomitant]
  3. DIURETICS [Concomitant]
  4. BETA BLOCKING AGENTS [Concomitant]
  5. ANTIHYPERTENSIVES [Concomitant]

REACTIONS (4)
  - TRANSIENT ISCHAEMIC ATTACK [None]
  - HEADACHE [None]
  - GLIOSIS [None]
  - HEARING IMPAIRED [None]
